FAERS Safety Report 5205933-4 (Version None)
Quarter: 2007Q1

REPORT INFORMATION
  Report Type: 
  Country: None (occurrence: None)
  Receive Date: 20070111
  Receipt Date: 20070102
  Transmission Date: 20070707
  Serious: Yes (Hospitalization)
  Sender: FDA-Public Use
  Company Number: FR-GLAXOSMITHKLINE-B0422664A

PATIENT
  Age: 55 Year
  Sex: Female

DRUGS (1)
  1. ADARTREL [Suspect]
     Indication: RESTLESS LEGS SYNDROME
     Route: 048
     Dates: start: 20060301, end: 20060401

REACTIONS (9)
  - ABDOMINAL PAIN [None]
  - APPENDICITIS [None]
  - BRADYCARDIA [None]
  - CLONUS [None]
  - LOSS OF CONSCIOUSNESS [None]
  - MALAISE [None]
  - SINUS ARREST [None]
  - SOMNOLENCE [None]
  - SYNCOPE [None]
